FAERS Safety Report 24106599 (Version 2)
Quarter: 2024Q3

REPORT INFORMATION
  Report Type: Spontaneous
  Country: KR (occurrence: KR)
  Receive Date: 20240717
  Receipt Date: 20240722
  Transmission Date: 20241016
  Serious: Yes (Death)
  Sender: ROCHE
  Company Number: KR-ROCHE-10000026567

PATIENT
  Age: 63 Year
  Sex: Male

DRUGS (6)
  1. TECENTRIQ [Suspect]
     Active Substance: ATEZOLIZUMAB
     Indication: Hepatocellular carcinoma
     Dosage: 5 CYCLE
     Route: 042
     Dates: start: 202308, end: 202311
  2. AVASTIN [Suspect]
     Active Substance: BEVACIZUMAB
     Indication: Hepatocellular carcinoma
     Dosage: 5 CYCLE
     Route: 042
     Dates: start: 202308, end: 202311
  3. LIPIODOL [Concomitant]
     Active Substance: ETHIODIZED OIL
  4. GELFOAM [Concomitant]
     Active Substance: DEVICE\GELATIN
  5. CISPLATIN [Concomitant]
     Active Substance: CISPLATIN
     Dates: start: 202304, end: 202308
  6. FLUOROURACIL [Concomitant]
     Active Substance: FLUOROURACIL
     Dates: start: 202304, end: 202308

REACTIONS (1)
  - Tumour haemorrhage [Fatal]

NARRATIVE: CASE EVENT DATE: 20231101
